APPROVED DRUG PRODUCT: SILENOR
Active Ingredient: DOXEPIN HYDROCHLORIDE
Strength: EQ 3MG BASE
Dosage Form/Route: TABLET;ORAL
Application: N022036 | Product #001 | TE Code: AB
Applicant: CURRAX PHARMACEUTICALS LLC
Approved: Mar 17, 2010 | RLD: Yes | RS: No | Type: RX

PATENTS:
Patent 9861607 | Expires: May 18, 2027
Patent 7915307 | Expires: Aug 24, 2027
Patent 8513299 | Expires: Sep 7, 2030
Patent 9572814 | Expires: Jul 20, 2027
Patent 12083090 | Expires: May 18, 2027
Patent 9486437 | Expires: May 18, 2027
Patent 10238620 | Expires: May 18, 2027
Patent 10548871 | Expires: Apr 11, 2028
Patent 10653660 | Expires: Jul 20, 2027
Patent 10653662 | Expires: May 18, 2027
Patent 11110074 | Expires: Jul 20, 2027
Patent 11096920 | Expires: Apr 11, 2028
Patent 11234954 | Expires: Jan 18, 2028
Patent 9107898 | Expires: May 1, 2028
Patent 9907780 | Expires: Apr 11, 2028
Patent 9532971 | Expires: Jun 1, 2029